FAERS Safety Report 6889400-8 (Version None)
Quarter: 2010Q3

REPORT INFORMATION
  Report Type: 
  Country: None (occurrence: None)
  Receive Date: 20100730
  Receipt Date: 20080711
  Transmission Date: 20110219
  Serious: No
  Sender: FDA-Public Use
  Company Number: US-PFIZER INC-2008014983

PATIENT
  Sex: Male
  Weight: 100 kg

DRUGS (4)
  1. LIPITOR [Suspect]
     Indication: PROPHYLAXIS
     Dates: start: 20061101, end: 20080216
  2. TOPROL-XL [Concomitant]
  3. BENEMID [Concomitant]
     Indication: BLOOD URIC ACID INCREASED
  4. TESTOSTERONE [Concomitant]
     Indication: MUSCLE MASS
     Route: 062

REACTIONS (1)
  - MUSCULAR WEAKNESS [None]
